FAERS Safety Report 9789635 (Version 2)
Quarter: 2015Q1

REPORT INFORMATION
  Report Type: Spontaneous
  Country: US (occurrence: US)
  Receive Date: 20131231
  Receipt Date: 20150221
  Transmission Date: 20150721
  Serious: Yes (Hospitalization, Other)
  Sender: FDA-Public Use
  Company Number: US-JNJFOC-20131215007

PATIENT
  Age: 21 Year
  Sex: Male

DRUGS (1)
  1. IBUPROFEN. [Suspect]
     Active Substance: IBUPROFEN
     Indication: INTENTIONAL OVERDOSE
     Route: 065

REACTIONS (5)
  - Thrombotic thrombocytopenic purpura [Unknown]
  - Nausea [Unknown]
  - Vomiting [Unknown]
  - Intentional overdose [Unknown]
  - Urine output decreased [Unknown]
